FAERS Safety Report 16947395 (Version 3)
Quarter: 2020Q1

REPORT INFORMATION
  Report Type: Spontaneous
  Country: ES (occurrence: ES)
  Receive Date: 20191022
  Receipt Date: 20200117
  Transmission Date: 20200409
  Serious: Yes (Hospitalization)
  Sender: FDA-Public Use
  Company Number: ES-PFIZER INC-2019453522

PATIENT
  Age: 71 Year
  Sex: Male

DRUGS (2)
  1. CARBOPLATIN. [Suspect]
     Active Substance: CARBOPLATIN
     Indication: SMALL CELL LUNG CANCER
     Dosage: 430 MG, SINGLE (AUC: 5 (430 MG CYCLE DAY EVERY 21 DAYS))
     Route: 042
     Dates: start: 20190807, end: 20190807
  2. ETOPOSIDE. [Suspect]
     Active Substance: ETOPOSIDE
     Indication: SMALL CELL LUNG CANCER
     Dosage: 160 MG, DAILY (100 MG/M2 DAY 1,2 AND 3 OF THE CYCLE EVERY 21 DAYS (160 MG))
     Route: 042
     Dates: start: 20190807, end: 20190809

REACTIONS (1)
  - Pancytopenia [Recovered/Resolved]

NARRATIVE: CASE EVENT DATE: 20190819
